FAERS Safety Report 15878219 (Version 1)
Quarter: 2019Q1

REPORT INFORMATION
  Report Type: Spontaneous
  Country: US (occurrence: US)
  Receive Date: 20190128
  Receipt Date: 20190128
  Transmission Date: 20190417
  Serious: No
  Sender: FDA-Public Use
  Company Number: US-PFIZER INC-2019036335

PATIENT
  Age: 32 Year
  Sex: Female

DRUGS (3)
  1. GENOTROPIN MQ [Suspect]
     Active Substance: SOMATROPIN
     Indication: BENIGN NEOPLASM
     Dosage: 0.8 MG, DAILY
  2. GENOTROPIN MQ [Suspect]
     Active Substance: SOMATROPIN
     Indication: CRANIOPHARYNGIOMA BENIGN
  3. GENOTROPIN MQ [Suspect]
     Active Substance: SOMATROPIN
     Indication: HEPATIC CIRRHOSIS

REACTIONS (9)
  - Carbon dioxide decreased [Unknown]
  - Immunology test abnormal [Unknown]
  - Product use in unapproved indication [Unknown]
  - Hypoaesthesia [Unknown]
  - Platelet count decreased [Unknown]
  - Weight increased [Unknown]
  - Blood glucose increased [Unknown]
  - Glycosylated haemoglobin increased [Unknown]
  - Insulin-like growth factor decreased [Unknown]

NARRATIVE: CASE EVENT DATE: 20180711
